FAERS Safety Report 13668380 (Version 2)
Quarter: 2017Q2

REPORT INFORMATION
  Report Type: Spontaneous
  Country: JP (occurrence: JP)
  Receive Date: 20170620
  Receipt Date: 20170629
  Transmission Date: 20170830
  Serious: Yes (Hospitalization)
  Sender: FDA-Public Use
  Company Number: PHJP2017JP019884

PATIENT
  Age: 46 Year
  Sex: Female
  Weight: 45.7 kg

DRUGS (1)
  1. NEORAL [Suspect]
     Active Substance: CYCLOSPORINE
     Indication: PSORIASIS
     Dosage: UNK
     Route: 048

REACTIONS (4)
  - Portal venous gas [Unknown]
  - Appendicitis [Recovered/Resolved]
  - Carcinoid tumour of the gastrointestinal tract [Recovered/Resolved]
  - Abscess intestinal [Recovered/Resolved]

NARRATIVE: CASE EVENT DATE: 20130121
